FAERS Safety Report 8968933 (Version 1)
Quarter: 2012Q4

REPORT INFORMATION
  Report Type: 
  Country: US (occurrence: US)
  Receive Date: 20121218
  Receipt Date: 20121218
  Transmission Date: 20130627
  Serious: No
  Sender: FDA-Public Use
  Company Number: US-BRISTOL-MYERS SQUIBB COMPANY-16686511

PATIENT
  Age: 56 Year
  Sex: Female
  Weight: 136 kg

DRUGS (8)
  1. ABILIFY [Suspect]
  2. BYSTOLIC [Suspect]
     Indication: TACHYCARDIA
     Dosage: Tabs. Also 5mg 2 per day from 2010-Ong
     Route: 048
     Dates: start: 2010
  3. BYSTOLIC [Suspect]
     Indication: HYPERTENSION
     Dosage: Tabs. Also 5mg 2 per day from 2010-Ong
     Route: 048
     Dates: start: 2010
  4. LEXAPRO [Concomitant]
     Route: 048
  5. AMBIEN [Concomitant]
     Indication: SLEEP DISORDER
  6. CLONAZEPAM [Concomitant]
     Indication: MENTAL DISORDER
  7. LASIX [Concomitant]
  8. POTASSIUM [Concomitant]

REACTIONS (4)
  - Weight increased [Not Recovered/Not Resolved]
  - Oedema peripheral [Not Recovered/Not Resolved]
  - Pain in extremity [Not Recovered/Not Resolved]
  - Arthralgia [Not Recovered/Not Resolved]
